FAERS Safety Report 10021543 (Version 1)
Quarter: 2014Q1

REPORT INFORMATION
  Report Type: Spontaneous
  Country: US (occurrence: US)
  Receive Date: 20140319
  Receipt Date: 20140319
  Transmission Date: 20141002
  Serious: Yes (Other)
  Sender: FDA-Public Use
  Company Number: US-TEVA-469749USA

PATIENT
  Age: 23 Year
  Sex: Female

DRUGS (1)
  1. JUNEL [Suspect]
     Indication: MENSTRUATION IRREGULAR

REACTIONS (1)
  - Angioedema [Recovering/Resolving]
